FAERS Safety Report 25364447 (Version 1)
Quarter: 2025Q2

REPORT INFORMATION
  Report Type: Spontaneous
  Country: CH (occurrence: CH)
  Receive Date: 20250527
  Receipt Date: 20250527
  Transmission Date: 20250717
  Serious: Yes (Hospitalization)
  Sender: PFIZER
  Company Number: None

PATIENT
  Age: 63 Year
  Sex: Male
  Weight: 45.7 kg

DRUGS (19)
  1. ALDACTONE [Suspect]
     Active Substance: SPIRONOLACTONE
     Dosage: 100 MG, 1X/DAY
     Route: 048
  2. TORSEMIDE [Suspect]
     Active Substance: TORSEMIDE
     Dosage: 5 MG, 1X/DAY
     Route: 048
     Dates: end: 20250501
  3. FOLIC ACID [Concomitant]
     Active Substance: FOLIC ACID
     Route: 048
  4. CARVEDILOL [Concomitant]
     Active Substance: CARVEDILOL
     Route: 048
  5. VITARUBIN [CYANOCOBALAMIN] [Concomitant]
     Route: 030
  6. POLIDOCANOL\UREA [Concomitant]
     Active Substance: POLIDOCANOL\UREA
     Dosage: 1 DF, 1X/DAY
     Route: 061
  7. TRIMIPRAMIN SANDOZ [TRIMIPRAMINE MALEATE] [Concomitant]
     Dosage: 50 MG, 1X/DAY
     Route: 048
  8. ZOLEDRONAT ONCO LABATEC [Concomitant]
     Route: 042
  9. ROSUVASTATIN CALCIUM [Concomitant]
     Active Substance: ROSUVASTATIN CALCIUM
     Dosage: 10 MG, 1X/DAY
     Route: 048
  10. FUSIDIC ACID [Concomitant]
     Active Substance: FUSIDIC ACID
     Dosage: 1 DF, 1X/DAY
     Route: 061
  11. MONOVO [Concomitant]
     Route: 061
  12. DISODIUM UNDECYLENIC MONOETHANOLAMIDE SULFOSUCCINATE [Concomitant]
     Active Substance: DISODIUM UNDECYLENIC MONOETHANOLAMIDE SULFOSUCCINATE
     Dosage: 1 DF, 1X/DAY
     Route: 061
  13. NEURONTIN [Concomitant]
     Active Substance: GABAPENTIN
     Route: 048
  14. ALLOPURINOL [Concomitant]
     Active Substance: ALLOPURINOL
     Dosage: 300 MG, 1X/DAY
     Route: 048
  15. TRAZODONE HYDROCHLORIDE [Concomitant]
     Active Substance: TRAZODONE HYDROCHLORIDE
     Dosage: 150 MG, 1X/DAY
     Route: 048
  16. ZINK [ZINC ASCORBATE] [Concomitant]
     Dosage: 30 MG, 1X/DAY
     Route: 048
  17. DUPHALAC [Concomitant]
     Active Substance: LACTULOSE
     Route: 048
  18. CHOLECALCIFEROL [Concomitant]
     Active Substance: CHOLECALCIFEROL
     Route: 048
  19. BIKTARVY [Concomitant]
     Active Substance: BICTEGRAVIR SODIUM\EMTRICITABINE\TENOFOVIR ALAFENAMIDE FUMARATE
     Dosage: 1 DF, 1X/DAY
     Route: 048

REACTIONS (3)
  - Hyponatraemia [Recovering/Resolving]
  - Nausea [Recovering/Resolving]
  - Back pain [Unknown]

NARRATIVE: CASE EVENT DATE: 20250430
